FAERS Safety Report 17678713 (Version 1)
Quarter: 2020Q2

REPORT INFORMATION
  Report Type: Spontaneous
  Country: US (occurrence: US)
  Receive Date: 20200417
  Receipt Date: 20200417
  Transmission Date: 20200714
  Serious: Yes (Other)
  Sender: FDA-Public Use
  Company Number: US-BIO PRODUCTS LABORATORY LTD-2082944

PATIENT
  Age: 49 Year
  Sex: Male

DRUGS (1)
  1. GAMMAPLEX [Suspect]
     Active Substance: HUMAN IMMUNOGLOBULIN G
     Route: 042
     Dates: start: 20200323

REACTIONS (5)
  - Hypertension [Unknown]
  - Dyspnoea [Unknown]
  - Muscular weakness [Unknown]
  - Pneumonia [Unknown]
  - Lethargy [Unknown]

NARRATIVE: CASE EVENT DATE: 20200323
